FAERS Safety Report 15961377 (Version 1)
Quarter: 2019Q1

REPORT INFORMATION
  Report Type: Spontaneous
  Country: FR (occurrence: FR)
  Receive Date: 20190214
  Receipt Date: 20190214
  Transmission Date: 20190417
  Serious: Yes (Hospitalization)
  Sender: FDA-Public Use
  Company Number: FR-TELIGENT, INC-IGIL20190087

PATIENT
  Age: 55 Year
  Sex: Male
  Weight: 52 kg

DRUGS (2)
  1. CEFTAZIDIME. [Suspect]
     Active Substance: CEFTAZIDIME
     Indication: OSTEOCHONDRITIS
     Dosage: 8 G
     Route: 048
     Dates: start: 20181113, end: 20181205
  2. TAVANIC [Suspect]
     Active Substance: LEVOFLOXACIN
     Indication: OSTEOCHONDRITIS
     Dosage: 750 MG
     Route: 048
     Dates: start: 20181113, end: 20181205

REACTIONS (3)
  - Eosinophilia [Recovered/Resolved]
  - Incorrect route of product administration [None]
  - Rash pruritic [Recovered/Resolved]

NARRATIVE: CASE EVENT DATE: 20181205
